FAERS Safety Report 5341688-0 (Version None)
Quarter: 2007Q2

REPORT INFORMATION
  Report Type: 
  Country: None (occurrence: None)
  Receive Date: 20070601
  Receipt Date: 20070522
  Transmission Date: 20071010
  Serious: Yes (Other)
  Sender: FDA-Public Use
  Company Number: CA-JNJFOC-20070505453

PATIENT
  Sex: Male
  Weight: 74 kg

DRUGS (11)
  1. REMICADE [Suspect]
     Indication: CROHN'S DISEASE
     Dosage: 5 OF 8 INFUSIONS RECEIVED
     Route: 042
  2. METHOTREXATE SODIUM [Suspect]
     Indication: CROHN'S DISEASE
     Dosage: 22 OF 50 INJECTIONS RECEIVED
  3. PLACEBO [Suspect]
     Indication: CROHN'S DISEASE
     Dosage: 22 OF 50 INJECTIONS RECEIVED
  4. OMEPRAZOLE [Concomitant]
  5. LIPITOR [Concomitant]
  6. ASPIRIN [Concomitant]
  7. ASCORBIC ACID [Concomitant]
  8. FERROUS FUMARATE [Concomitant]
  9. VITAMIN D3 [Concomitant]
  10. MULTI-VITAMINS [Concomitant]
  11. TPN [Concomitant]

REACTIONS (1)
  - BASAL CELL CARCINOMA [None]
